FAERS Safety Report 4335401-3 (Version None)
Quarter: 2004Q2

REPORT INFORMATION
  Report Type: 
  Country: None (occurrence: None)
  Receive Date: 20040409
  Receipt Date: 20040402
  Transmission Date: 20050107
  Serious: Yes (Other)
  Sender: FDA-Public Use
  Company Number: FR-BRISTOL-MYERS SQUIBB COMPANY-12553517

PATIENT
  Age: 39 Year
  Sex: Male

DRUGS (11)
  1. VIDEX [Suspect]
     Dosage: THERAPY DISCONTINUED ON 26-MAY-2000 AND RE-STARTED IN OCT-2000.
     Dates: start: 19990501
  2. ZERIT [Suspect]
     Dates: start: 19990501, end: 20000526
  3. SUSTIVA [Suspect]
     Dates: start: 20010501
  4. EPIVIR [Suspect]
     Dosage: THERAPY DISCONTINUED ON 26-MAY-2000 AND RE-STARTED IN OCT-2000.
     Dates: start: 19990501
  5. INVIRASE [Suspect]
     Dates: start: 19990501, end: 20000526
  6. KALETRA [Suspect]
     Dates: start: 20001001
  7. ZIAGEN [Suspect]
     Dates: start: 20001001
  8. AGENERASE [Suspect]
     Dates: start: 20010501
  9. TENOFOVIR [Suspect]
     Dates: start: 20010501
  10. RITONAVIR [Suspect]
     Dates: start: 20010501
  11. TRIATEC [Concomitant]

REACTIONS (5)
  - GLOMERULONEPHRITIS MEMBRANOPROLIFERATIVE [None]
  - GLOMERULONEPHRITIS PROLIFERATIVE [None]
  - HAEMOLYTIC ANAEMIA [None]
  - HEPATITIS [None]
  - RENAL FAILURE [None]
